FAERS Safety Report 9260524 (Version 2)
Quarter: 2013Q4

REPORT INFORMATION
  Report Type: Spontaneous
  Country: DE (occurrence: DE)
  Receive Date: 20130429
  Receipt Date: 20131106
  Transmission Date: 20140711
  Serious: Yes (Hospitalization)
  Sender: FDA-Public Use
  Company Number: DE-NAPPMUNDI-DEU-2013-0011423

PATIENT
  Age: 43 Year
  Sex: Male
  Weight: 85 kg

DRUGS (4)
  1. NORSPAN [Suspect]
     Indication: PAIN
     Dosage: 15 MCG, Q1H
     Route: 062
     Dates: start: 201301, end: 20130415
  2. NOVAMINSULFON [Concomitant]
     Indication: PAIN
     Dosage: 40 DROP, QID
     Route: 048
     Dates: start: 201301
  3. PANTOPRAZOL [Concomitant]
     Dosage: 40 MG, DAILY
     Route: 048
     Dates: start: 201301
  4. INUVAIR [Concomitant]
     Dosage: 2 PUFF, TID
     Route: 055
     Dates: start: 201301

REACTIONS (4)
  - Anaphylactic reaction [Recovered/Resolved]
  - Drug withdrawal syndrome [Recovered/Resolved]
  - Dysphonia [Recovered/Resolved]
  - Application site vesicles [Recovered/Resolved]
